FAERS Safety Report 8342333-2 (Version None)
Quarter: 2012Q2

REPORT INFORMATION
  Report Type: 
  Country: None (occurrence: None)
  Receive Date: 20120508
  Receipt Date: 20120425
  Transmission Date: 20120825
  Serious: Yes (Other)
  Sender: FDA-Public Use
  Company Number: BR-AMGEN-BRASP2012027300

PATIENT
  Age: 78 Year
  Sex: Female
  Weight: 70 kg

DRUGS (8)
  1. DIOVAN [Concomitant]
     Dosage: UNK
  2. MODURETIC 5-50 [Concomitant]
     Dosage: UNK
  3. AMIODARONE HYDROCHLORIDE [Concomitant]
     Dosage: UNK
  4. GALVUS MET [Concomitant]
     Dosage: UNK
  5. ENBREL [Suspect]
     Dosage: UNK
     Route: 058
     Dates: start: 20111201
  6. ENBREL [Suspect]
     Indication: PSORIASIS
     Dosage: 50 MG, WEEKLY
     Route: 058
     Dates: start: 20090701
  7. VERAPAMIL [Concomitant]
     Dosage: UNK
  8. METHOTREXATE [Concomitant]
     Dosage: UNK

REACTIONS (3)
  - INJECTION SITE WARMTH [None]
  - INJECTION SITE PAIN [None]
  - RHEUMATOID ARTHRITIS [None]
